FAERS Safety Report 6057726-6 (Version None)
Quarter: 2009Q1

REPORT INFORMATION
  Report Type: 
  Country: None (occurrence: None)
  Receive Date: 20090129
  Receipt Date: 20090121
  Transmission Date: 20090719
  Serious: Yes (Hospitalization)
  Sender: FDA-Public Use
  Company Number: FR-ASTRAZENECA-2009CG00249

PATIENT
  Age: 24757 Day
  Sex: Female
  Weight: 109 kg

DRUGS (14)
  1. TENORMIN [Suspect]
     Route: 048
     Dates: end: 20080101
  2. VASTEN [Suspect]
     Route: 048
     Dates: end: 20080806
  3. CORDARONE [Suspect]
     Route: 048
     Dates: end: 20080101
  4. ROCEPHIN [Suspect]
     Route: 042
     Dates: start: 20080716, end: 20080805
  5. OFLOXACIN [Suspect]
     Route: 048
     Dates: start: 20080722, end: 20080805
  6. CELLCEPT [Suspect]
     Route: 048
     Dates: end: 20080808
  7. AMLOR [Suspect]
     Route: 048
     Dates: end: 20080101
  8. NEORAL [Concomitant]
     Route: 048
  9. LASILIX [Concomitant]
     Dates: end: 20080101
  10. SPECIAFOLDINE [Concomitant]
     Route: 048
     Dates: end: 20080101
  11. FLAGYL [Concomitant]
     Dates: start: 20080716, end: 20080805
  12. ARANESP [Concomitant]
     Dates: end: 20080101
  13. PREVISCAN [Concomitant]
     Dates: end: 20080101
  14. CALCIPARINE [Concomitant]

REACTIONS (4)
  - MUSCULAR WEAKNESS [None]
  - QUADRIPARESIS [None]
  - RENAL FAILURE [None]
  - RHABDOMYOLYSIS [None]
